FAERS Safety Report 25040154 (Version 1)
Quarter: 2025Q1

REPORT INFORMATION
  Report Type: Spontaneous
  Country: AU (occurrence: AU)
  Receive Date: 20250305
  Receipt Date: 20250305
  Transmission Date: 20250409
  Serious: Yes (Other)
  Sender: ALEXION PHARMACEUTICALS
  Company Number: AU-GSK-AU2024APC159937

PATIENT

DRUGS (3)
  1. BEYFORTUS [Suspect]
     Active Substance: NIRSEVIMAB-ALIP
     Indication: Product used for unknown indication
  2. ENGERIX-B [Suspect]
     Active Substance: HEPATITIS B VIRUS SUBTYPE ADW2 HBSAG SURFACE PROTEIN ANTIGEN
     Indication: Prophylaxis
  3. VITAMIN K1 [Concomitant]
     Active Substance: PHYTONADIONE
     Indication: Product used for unknown indication

REACTIONS (5)
  - Bradycardia neonatal [Unknown]
  - Choking [Unknown]
  - Thrombocytopenia [Unknown]
  - Feeling jittery [Unknown]
  - Jaundice neonatal [Unknown]
